FAERS Safety Report 19476529 (Version 10)
Quarter: 2021Q4

REPORT INFORMATION
  Report Type: Spontaneous
  Country: US (occurrence: US)
  Receive Date: 20210630
  Receipt Date: 20211223
  Transmission Date: 20220303
  Serious: Yes (Life-Threatening, Hospitalization, Other)
  Sender: FDA-Public Use
  Company Number: US-UNITED THERAPEUTICS-UNT-2021-011683

PATIENT
  Sex: Female
  Weight: 89.796 kg

DRUGS (5)
  1. REMODULIN [Suspect]
     Active Substance: TREPROSTINIL
     Indication: Pulmonary arterial hypertension
     Dosage: UNK, CONTINUING
     Route: 041
     Dates: start: 20210415
  2. REMODULIN [Suspect]
     Active Substance: TREPROSTINIL
     Dosage: 0.060 ?G/KG, CONTINUING
     Route: 041
     Dates: start: 2021
  3. REMODULIN [Suspect]
     Active Substance: TREPROSTINIL
     Dosage: UNK, CONTINUING
     Route: 041
     Dates: start: 2021, end: 2021
  4. OPSUMIT [Concomitant]
     Active Substance: MACITENTAN
     Indication: Product used for unknown indication
     Dosage: UNK
     Route: 065
  5. ELIQUIS [Concomitant]
     Active Substance: APIXABAN
     Indication: Product used for unknown indication
     Dosage: UNK
     Route: 065

REACTIONS (12)
  - Vascular device infection [Unknown]
  - Septic shock [Recovered/Resolved]
  - Coma [Recovered/Resolved]
  - Cardiac failure congestive [Recovered/Resolved]
  - Renal injury [Unknown]
  - Anxiety [Not Recovered/Not Resolved]
  - Fatigue [Unknown]
  - Catheter site erythema [Unknown]
  - Catheter site discharge [Unknown]
  - Lung disorder [Unknown]
  - Skin erosion [Unknown]
  - Fluid retention [Unknown]

NARRATIVE: CASE EVENT DATE: 20210101
